FAERS Safety Report 4327563-9 (Version None)
Quarter: 2004Q1

REPORT INFORMATION
  Report Type: 
  Country: None (occurrence: None)
  Receive Date: 20040330
  Receipt Date: 20040330
  Transmission Date: 20041129
  Serious: Yes (Hospitalization)
  Sender: FDA-Public Use
  Company Number: None

PATIENT
  Age: 45 Year
  Sex: Female
  Weight: 75.2971 kg

DRUGS (8)
  1. LEVAQUIN [Suspect]
     Indication: TUBERCULOSIS
     Dosage: 500 MG DAILY ORAL
     Route: 048
     Dates: start: 20020610, end: 20030625
  2. RIFAMPIN [Suspect]
     Indication: TUBERCULOSIS
     Dosage: 600 MG DAILY ORAL
     Route: 048
     Dates: start: 20020808, end: 20030625
  3. AVANDIA [Concomitant]
  4. SYNTHROID [Concomitant]
  5. ISONIAZID [Concomitant]
  6. RIFAMPIN [Concomitant]
  7. PYRAZINAMIDE [Concomitant]
  8. ETHAMBUTOL HCL [Concomitant]

REACTIONS (8)
  - CONTUSION [None]
  - GINGIVAL BLEEDING [None]
  - HAEMOGLOBIN DECREASED [None]
  - MENORRHAGIA [None]
  - PETECHIAE [None]
  - PLATELET COUNT DECREASED [None]
  - SKIN DISCOLOURATION [None]
  - TONGUE DISCOLOURATION [None]
